FAERS Safety Report 14219583 (Version 2)
Quarter: 2017Q4

REPORT INFORMATION
  Report Type: Other
  Country: US (occurrence: US)
  Receive Date: 20171123
  Receipt Date: 20171207
  Transmission Date: 20180321
  Serious: Yes (Other)
  Sender: FDA-Public Use
  Company Number: US-VELOXIS PHARMACEUTICALS-2034971

PATIENT
  Age: 56 Year
  Sex: Female

DRUGS (2)
  1. MYCOPHENOLATE MOFETIL. [Suspect]
     Active Substance: MYCOPHENOLATE MOFETIL
  2. ENVARSUS XR [Suspect]
     Active Substance: TACROLIMUS
     Indication: TRANSPLANT

REACTIONS (5)
  - Intentional product use issue [Unknown]
  - Conjunctival haemorrhage [Recovered/Resolved]
  - Intentional product misuse [Unknown]
  - Transplant rejection [Recovered/Resolved]
  - Conjunctival melanoma [Recovered/Resolved]
